FAERS Safety Report 7763622-6 (Version None)
Quarter: 2011Q3

REPORT INFORMATION
  Report Type: 
  Country: None (occurrence: None)
  Receive Date: 20110921
  Receipt Date: 20110912
  Transmission Date: 20111222
  Serious: Yes (Life-Threatening)
  Sender: FDA-Public Use
  Company Number: DE-AMGEN-DEUSP2011047135

PATIENT
  Age: 54 Year
  Sex: Male

DRUGS (2)
  1. ENBREL [Suspect]
     Indication: PSORIATIC ARTHROPATHY
     Dosage: 50 MG, 2X/WEEK
     Dates: start: 20080101, end: 20110616
  2. HUMIRA [Concomitant]
     Indication: PSORIATIC ARTHROPATHY
     Dosage: 40 MG, ONCE EVERY SECOND WEEK
     Dates: start: 20110616, end: 20110825

REACTIONS (1)
  - BLADDER CANCER [None]
